FAERS Safety Report 9645725 (Version 1)
Quarter: 2013Q4

REPORT INFORMATION
  Report Type: Spontaneous
  Country: US (occurrence: None)
  Receive Date: 20131024
  Receipt Date: 20131024
  Transmission Date: 20140711
  Serious: Yes (Hospitalization)
  Sender: FDA-Public Use
  Company Number: None

PATIENT
  Age: 52 Year
  Sex: Male
  Weight: 113.85 kg

DRUGS (2)
  1. CHANTIX 1MG PFIZER [Suspect]
     Indication: SMOKING CESSATION THERAPY
     Route: 048
     Dates: start: 20130913, end: 20131005
  2. BUPROPION 150MG XL ? GENERIC [Suspect]
     Indication: SMOKING CESSATION THERAPY
     Route: 048
     Dates: start: 20130913, end: 20131005

REACTIONS (5)
  - Hemiparesis [None]
  - Vision blurred [None]
  - Thrombosis [None]
  - Headache [None]
  - VIIth nerve paralysis [None]
